FAERS Safety Report 25471729 (Version 2)
Quarter: 2025Q3

REPORT INFORMATION
  Report Type: Spontaneous
  Country: US (occurrence: US)
  Receive Date: 20250624
  Receipt Date: 20250726
  Transmission Date: 20251021
  Serious: No
  Sender: TOLMAR
  Company Number: US-Tolmar-TLM-2025-02056

PATIENT
  Sex: Female

DRUGS (5)
  1. FENSOLVI [Suspect]
     Active Substance: LEUPROLIDE ACETATE
     Indication: Precocious puberty
  2. FENSOLVI [Suspect]
     Active Substance: LEUPROLIDE ACETATE
  3. FENSOLVI [Suspect]
     Active Substance: LEUPROLIDE ACETATE
  4. FENSOLVI [Suspect]
     Active Substance: LEUPROLIDE ACETATE
  5. DEVICE [Suspect]
     Active Substance: DEVICE
     Indication: Precocious puberty

REACTIONS (3)
  - Blood luteinising hormone increased [Recovered/Resolved]
  - Blood follicle stimulating hormone increased [Recovered/Resolved]
  - Drug ineffective [Unknown]
